FAERS Safety Report 24771669 (Version 1)
Quarter: 2024Q4

REPORT INFORMATION
  Report Type: Spontaneous
  Country: US (occurrence: US)
  Receive Date: 20241224
  Receipt Date: 20241224
  Transmission Date: 20250115
  Serious: Yes (Other)
  Sender: PFIZER
  Company Number: US-PFIZER INC-202400329349

PATIENT
  Age: 22 Year
  Sex: Female

DRUGS (1)
  1. VELSIPITY [Suspect]
     Active Substance: ETRASIMOD ARGININE
     Dosage: TAKE 1 TABLET (2 MG TOTAL) BY MOUTH DAILY
     Route: 048

REACTIONS (7)
  - Haematochezia [Unknown]
  - Frequent bowel movements [Unknown]
  - Sacral pain [Unknown]
  - Poor quality sleep [Unknown]
  - Pain [Unknown]
  - Abnormal faeces [Unknown]
  - Drug ineffective [Unknown]
